FAERS Safety Report 18448122 (Version 1)
Quarter: 2020Q4

REPORT INFORMATION
  Report Type: Report from Study
  Country: EG (occurrence: EG)
  Receive Date: 20201101
  Receipt Date: 20201101
  Transmission Date: 20210114
  Serious: Yes (Hospitalization, Other)
  Sender: FDA-Public Use
  Company Number: NVSC2020EG284288

PATIENT
  Age: 40 Year
  Sex: Female

DRUGS (7)
  1. GLIVEC [Suspect]
     Active Substance: IMATINIB MESYLATE
     Indication: PRODUCT USED FOR UNKNOWN INDICATION
     Dosage: 400 MG
     Route: 065
  2. TASIGNA [Suspect]
     Active Substance: NILOTINIB
     Dosage: 800 MG, QD
     Route: 065
  3. GLIVEC [Suspect]
     Active Substance: IMATINIB MESYLATE
     Dosage: UNK
     Route: 065
     Dates: start: 202008
  4. FAMOTAK [Concomitant]
     Indication: PRODUCT USED FOR UNKNOWN INDICATION
     Dosage: 1 TAB BEFORE BREAKFAST AND ANOTHER ONE BEFORE DINER
     Route: 065
     Dates: start: 202002
  5. TASIGNA [Suspect]
     Active Substance: NILOTINIB
     Dosage: 150 MG
     Route: 065
     Dates: start: 202006, end: 202008
  6. TASIGNA [Suspect]
     Active Substance: NILOTINIB
     Dosage: 600 MG, QD
     Route: 065
  7. TASIGNA [Suspect]
     Active Substance: NILOTINIB
     Indication: CHRONIC MYELOID LEUKAEMIA
     Dosage: 200 MG
     Route: 065
     Dates: start: 202005, end: 202006

REACTIONS (8)
  - Coma [Recovering/Resolving]
  - Platelet count increased [Not Recovered/Not Resolved]
  - Splenomegaly [Not Recovered/Not Resolved]
  - Blood pressure decreased [Not Recovered/Not Resolved]
  - Tremor [Not Recovered/Not Resolved]
  - Abdominal pain [Not Recovered/Not Resolved]
  - Platelet count decreased [Recovered/Resolved]
  - Blood glucose decreased [Not Recovered/Not Resolved]

NARRATIVE: CASE EVENT DATE: 202010
